FAERS Safety Report 4964964-X (Version None)
Quarter: 2006Q1

REPORT INFORMATION
  Report Type: 
  Country: None (occurrence: None)
  Receive Date: 20060201
  Receipt Date: 20051222
  Transmission Date: 20060701
  Serious: No
  Sender: FDA-Public Use
  Company Number: FACT0500742

PATIENT
  Age: 35 Year
  Sex: Male

DRUGS (2)
  1. FACTIVE [Suspect]
     Indication: RESPIRATORY TRACT INFECTION BACTERIAL
     Dates: start: 20051211, end: 20051201
  2. PREVACID [Suspect]
     Dates: start: 20051211

REACTIONS (1)
  - RASH [None]
